FAERS Safety Report 5065462-8 (Version None)
Quarter: 2006Q3

REPORT INFORMATION
  Report Type: 
  Country: None (occurrence: None)
  Receive Date: 20060731
  Receipt Date: 20060721
  Transmission Date: 20061208
  Serious: Yes (Hospitalization)
  Sender: FDA-Public Use
  Company Number: DEWYE308121JUL06

PATIENT
  Age: 56 Year
  Sex: Female

DRUGS (3)
  1. ENBREL [Suspect]
     Indication: RHEUMATOID ARTHRITIS
     Dosage: UNKNOWN
     Route: 065
     Dates: start: 20040701, end: 20051001
  2. DECORTIN [Concomitant]
     Indication: RHEUMATOID ARTHRITIS
     Dosage: 7.5 -10 MG
     Dates: start: 20010101
  3. CALCIMAGON [Concomitant]
     Dosage: UNKNOWN

REACTIONS (4)
  - DNA ANTIBODY POSITIVE [None]
  - LUPUS-LIKE SYNDROME [None]
  - PHOTODERMATOSIS [None]
  - PROTEINURIA [None]
